FAERS Safety Report 17721561 (Version 5)
Quarter: 2020Q4

REPORT INFORMATION
  Report Type: Spontaneous
  Country: US (occurrence: US)
  Receive Date: 20200429
  Receipt Date: 20201218
  Transmission Date: 20210113
  Serious: No
  Sender: FDA-Public Use
  Company Number: US-GLAXOSMITHKLINE-US2020AMR072139

PATIENT
  Sex: Female

DRUGS (5)
  1. ZEJULA [Suspect]
     Active Substance: NIRAPARIB
     Dosage: 100 MG, QD
     Route: 065
  2. ZEJULA [Suspect]
     Active Substance: NIRAPARIB
     Dosage: 200 MG, QD, QPM
     Route: 065
     Dates: start: 20200524
  3. ZEJULA [Suspect]
     Active Substance: NIRAPARIB
     Dosage: 100 MG, QD
     Route: 048
  4. ZEJULA [Suspect]
     Active Substance: NIRAPARIB
     Indication: OVARIAN CANCER
     Dosage: 200 MG, QD
     Route: 065
     Dates: start: 20200416
  5. ZEJULA [Suspect]
     Active Substance: NIRAPARIB
     Dosage: 200 MG, QD
     Route: 065

REACTIONS (12)
  - Insomnia [Unknown]
  - Myalgia [Unknown]
  - Weight increased [Unknown]
  - Pruritus [Unknown]
  - Adverse drug reaction [Unknown]
  - Decreased appetite [Unknown]
  - Underdose [Unknown]
  - Arthralgia [Unknown]
  - Skin disorder [Unknown]
  - Platelet count decreased [Unknown]
  - Hypertension [Unknown]
  - Cataract operation [Unknown]
